FAERS Safety Report 8872669 (Version 1)
Quarter: 2012Q4

REPORT INFORMATION
  Report Type: 
  Country: US (occurrence: US)
  Receive Date: 20121026
  Receipt Date: 20121026
  Transmission Date: 20130627
  Serious: No
  Sender: FDA-Public Use
  Company Number: US-AMGEN-USASP2012049409

PATIENT
  Age: 43 Year
  Sex: Female
  Weight: 61 kg

DRUGS (9)
  1. ENBREL [Suspect]
     Indication: PRODUCT USED FOR UNKNOWN INDICATION
     Dosage: 50 mg, qwk
     Route: 058
  2. PREDNISONE [Concomitant]
     Dosage: 1 mg, UNK
  3. FOLIC ACID [Concomitant]
     Dosage: UNK
  4. OMEPRAZOLE [Concomitant]
     Dosage: 10 mg, UNK
  5. MORPHINE SULFATE [Concomitant]
     Dosage: 30 mg, UNK
  6. VITAMIN D /00107901/ [Concomitant]
     Dosage: 1000 unit, UNK
  7. METHOTREXATE [Concomitant]
     Dosage: 20 mg, UNK
  8. TRAZODONE [Concomitant]
     Dosage: 50 mg, UNK
  9. LORAZEPAM [Concomitant]
     Dosage: 1 mg, UNK

REACTIONS (1)
  - Influenza like illness [Unknown]
